FAERS Safety Report 8697095 (Version 2)
Quarter: 2012Q4

REPORT INFORMATION
  Report Type: 
  Country: BR (occurrence: BR)
  Receive Date: 20120801
  Receipt Date: 20121017
  Transmission Date: 20130627
  Serious: Yes (Hospitalization)
  Sender: FDA-Public Use
  Company Number: BR-ASTRAZENECA-2012SE52149

PATIENT
  Sex: Male

DRUGS (1)
  1. SELOZOK [Suspect]
     Route: 048

REACTIONS (1)
  - Malaise [Recovered/Resolved]
